FAERS Safety Report 25209981 (Version 1)
Quarter: 2025Q2

REPORT INFORMATION
  Report Type: Spontaneous
  Country: US (occurrence: None)
  Receive Date: 20250417
  Receipt Date: 20250417
  Transmission Date: 20250716
  Serious: Yes (Hospitalization, Disabling)
  Sender: FDA-CTU
  Company Number: None

PATIENT
  Age: 89 Year
  Sex: Female
  Weight: 57.6 kg

DRUGS (17)
  1. EVENITY [Suspect]
     Active Substance: ROMOSOZUMAB-AQQG
     Indication: Osteoporosis
     Dates: start: 20250211, end: 20250314
  2. CARVEDILOL [Concomitant]
     Active Substance: CARVEDILOL
  3. ELIQUIS [Concomitant]
     Active Substance: APIXABAN
  4. LEVOTHYROXINE [Concomitant]
     Active Substance: LEVOTHYROXINE
  5. FUROSEMIDE [Concomitant]
     Active Substance: FUROSEMIDE
  6. BENAZAPRIL HCL [Concomitant]
  7. SPIRONOLACTONE [Concomitant]
     Active Substance: SPIRONOLACTONE
  8. CLONODINE PATCH [Concomitant]
  9. TOLTERODINE TART ER [Concomitant]
  10. FOLIC ACID [Concomitant]
     Active Substance: FOLIC ACID
  11. EZFE [Concomitant]
  12. VITAMIN B12 [Concomitant]
     Active Substance: CYANOCOBALAMIN
  13. OCUVITE [Concomitant]
     Active Substance: VITAMINS
  14. DEMANNOSE [Concomitant]
     Active Substance: DEMANNOSE
  15. CRANBERRY [Concomitant]
     Active Substance: CRANBERRY
  16. PROBIOTICS NOS [Concomitant]
     Active Substance: PROBIOTICS NOS
  17. GLUCOSAMINE/CHONDROITIN [Concomitant]

REACTIONS (7)
  - Left ventricular failure [None]
  - Arthralgia [None]
  - Dysstasia [None]
  - Localised oedema [None]
  - Oedema peripheral [None]
  - Dehydration [None]
  - Chronic kidney disease [None]

NARRATIVE: CASE EVENT DATE: 20250324
